FAERS Safety Report 11580872 (Version 2)
Quarter: 2015Q4

REPORT INFORMATION
  Report Type: Spontaneous
  Country: DE (occurrence: DE)
  Receive Date: 20151001
  Receipt Date: 20151009
  Transmission Date: 20160304
  Serious: Yes (Disabling)
  Sender: FDA-Public Use
  Company Number: DE-AUROBINDO-AUR-APL-2015-08637

PATIENT
  Age: 39 Year
  Sex: Female
  Weight: 49 kg

DRUGS (1)
  1. LEVOFLOXACIN 500MG [Suspect]
     Active Substance: LEVOFLOXACIN
     Indication: SINUSITIS
     Dosage: 500 MG, UNK
     Route: 048
     Dates: start: 20140505

REACTIONS (16)
  - Coordination abnormal [Unknown]
  - Multiple sclerosis [Unknown]
  - Dizziness [Unknown]
  - Torus fracture [Unknown]
  - Tendon calcification [Recovered/Resolved with Sequelae]
  - Muscle spasms [Unknown]
  - Eye pain [Unknown]
  - Joint crepitation [Unknown]
  - Vision blurred [Unknown]
  - Gait disturbance [Unknown]
  - Balance disorder [Unknown]
  - Asthenia [Unknown]
  - Sensory loss [Unknown]
  - Tendon pain [Unknown]
  - Hypoaesthesia [Unknown]
  - Muscle spasticity [Unknown]

NARRATIVE: CASE EVENT DATE: 20140505
